FAERS Safety Report 7960960-9 (Version None)
Quarter: 2011Q4

REPORT INFORMATION
  Report Type: 
  Country: None (occurrence: None)
  Receive Date: 20111202
  Receipt Date: 20111117
  Transmission Date: 20120403
  Serious: Yes (Hospitalization, Other)
  Sender: FDA-Public Use
  Company Number: VAL_00657_2011

PATIENT
  Sex: Female

DRUGS (7)
  1. ROCALTROL [Suspect]
     Indication: OSTEOPOROSIS
     Dosage: 1 DF BID ORAL
     Route: 048
     Dates: start: 20100101, end: 20110722
  2. PROPRANOLOL [Concomitant]
  3. EUPRESSYL /00631801/ [Concomitant]
  4. ESCITALOPRAM OXALATE [Concomitant]
  5. AMLODIPINE BESYLATE [Concomitant]
  6. OROCAL D3 (OROCAL-VITAMINE D3) (NOT SPECIFIED) [Suspect]
     Indication: PRODUCT USED FOR UNKNOWN INDICATION
     Dosage: 1 DF BID, 500 MG/200IU ORAL
     Route: 048
     Dates: start: 20100101, end: 20110722
  7. RISPERDAL [Concomitant]

REACTIONS (3)
  - CONCOMITANT DISEASE AGGRAVATED [None]
  - RENAL FAILURE CHRONIC [None]
  - HYPERCALCAEMIA [None]
